FAERS Safety Report 6771815-X (Version None)
Quarter: 2010Q2

REPORT INFORMATION
  Report Type: 
  Country: None (occurrence: None)
  Receive Date: 20100616
  Receipt Date: 20090702
  Transmission Date: 20101027
  Serious: No
  Sender: FDA-Public Use
  Company Number: US-ASTRAZENECA-2009UW18535

PATIENT
  Sex: Male
  Weight: 68 kg

DRUGS (4)
  1. ENTOCORT EC [Suspect]
     Indication: CROHN'S DISEASE
     Route: 048
  2. CARDIZEM [Concomitant]
  3. FLOMAX [Concomitant]
  4. PROSCAR [Concomitant]

REACTIONS (3)
  - CUSHINGOID [None]
  - OEDEMA PERIPHERAL [None]
  - SYSTOLIC HYPERTENSION [None]
